FAERS Safety Report 10064561 (Version 2)
Quarter: 2015Q4

REPORT INFORMATION
  Report Type: Spontaneous
  Country: GB (occurrence: GB)
  Receive Date: 20140408
  Receipt Date: 20151006
  Transmission Date: 20160304
  Serious: Yes (Other)
  Sender: FDA-Public Use
  Company Number: GB-MYLANLABS-2014S1007435

PATIENT

DRUGS (5)
  1. CARBIDOPA,LEVODOPA [Suspect]
     Active Substance: CARBIDOPA\LEVODOPA
     Indication: PARKINSON^S DISEASE
     Dosage: UNK
     Route: 065
  2. SELEGILINE [Suspect]
     Active Substance: SELEGILINE
     Indication: PARKINSON^S DISEASE
     Dosage: 10 MG,QD
     Route: 065
  3. ROPINIROLE. [Suspect]
     Active Substance: ROPINIROLE
     Indication: PARKINSON^S DISEASE
     Dosage: 4 MG,QD
     Route: 065
  4. TRIMETHOPRIM. [Concomitant]
     Active Substance: TRIMETHOPRIM
     Indication: URINARY TRACT INFECTION
     Dosage: UNK
     Route: 065
  5. ROPINIROLE. [Suspect]
     Active Substance: ROPINIROLE
     Dosage: 2 MG,QD
     Route: 065

REACTIONS (4)
  - Dopamine dysregulation syndrome [Unknown]
  - Orthostatic hypotension [Unknown]
  - Drug withdrawal syndrome [Unknown]
  - Parkinsonism hyperpyrexia syndrome [Recovering/Resolving]
